FAERS Safety Report 19164349 (Version 1)
Quarter: 2021Q2

REPORT INFORMATION
  Report Type: Other
  Country: DE (occurrence: DE)
  Receive Date: 20210421
  Receipt Date: 20210421
  Transmission Date: 20210717
  Serious: Yes (Hospitalization)
  Sender: FDA-Public Use
  Company Number: DE-COLLEGIUM PHARMACEUTICAL, INC.-2021CGM00399

PATIENT
  Age: 86 Year
  Sex: Female

DRUGS (13)
  1. VITAMIN D [Concomitant]
     Active Substance: VITAMIN D NOS
  2. LEVOTHYROXIN [Suspect]
     Active Substance: LEVOTHYROXINE
     Indication: PRODUCT USED FOR UNKNOWN INDICATION
     Dosage: 75 ?G, 1X/DAY
  3. MAGNESIUM OROTATE. [Concomitant]
     Active Substance: MAGNESIUM OROTATE
  4. TAPENTADOL [Suspect]
     Active Substance: TAPENTADOL
     Dosage: 50 MG, 1X/DAY
  5. SPIRONOLACTON [Suspect]
     Active Substance: SPIRONOLACTONE
     Indication: PRODUCT USED FOR UNKNOWN INDICATION
     Dosage: 25 MG, 1X/DAY
  6. BUDESONIDE. [Suspect]
     Active Substance: BUDESONIDE
     Indication: PRODUCT USED FOR UNKNOWN INDICATION
     Dosage: 3 MG, 1X/DAY
     Route: 048
  7. METAMIZOL [Concomitant]
     Active Substance: METAMIZOLE SODIUM
     Dosage: UNK
     Dates: start: 202101
  8. PROBIOTICS NOS [Suspect]
     Active Substance: PROBIOTICS NOS
     Indication: GASTROINTESTINAL DISORDER PROPHYLAXIS
  9. TAPENTADOL [Suspect]
     Active Substance: TAPENTADOL
     Indication: PAIN
     Dosage: 50 MG, 1X/DAY
  10. ATACAND [Suspect]
     Active Substance: CANDESARTAN CILEXETIL
     Indication: HYPERTENSION
     Dosage: 8 MG, 1X/DAY
     Route: 048
  11. NALOXONE; OXYCODONE [Concomitant]
     Dosage: UNK
     Dates: start: 20210212
  12. VITAMIN D [Concomitant]
     Active Substance: VITAMIN D NOS
     Dosage: UNK
     Dates: start: 202101
  13. LIXIANA [Suspect]
     Active Substance: EDOXABAN TOSYLATE
     Indication: PRODUCT USED FOR UNKNOWN INDICATION

REACTIONS (3)
  - Faeces discoloured [Unknown]
  - Diarrhoea [Recovering/Resolving]
  - Gastrointestinal pain [Unknown]

NARRATIVE: CASE EVENT DATE: 202101
